FAERS Safety Report 9384475 (Version 1)
Quarter: 2013Q3

REPORT INFORMATION
  Report Type: Spontaneous
  Country: US (occurrence: US)
  Receive Date: 20130705
  Receipt Date: 20130705
  Transmission Date: 20140515
  Serious: Yes (Other)
  Sender: FDA-Public Use
  Company Number: US-ASTRAZENECA-2013SE49286

PATIENT
  Age: 54 Year
  Sex: Female
  Weight: 56.7 kg

DRUGS (5)
  1. SYMBICORT [Suspect]
     Indication: CHRONIC OBSTRUCTIVE PULMONARY DISEASE
     Dosage: 160/4.5MCG, 2 PUFFS BID
     Route: 055
  2. SPIRIVA [Concomitant]
     Indication: CHRONIC OBSTRUCTIVE PULMONARY DISEASE
     Dosage: 1 DAILY
  3. PRO AIRE INHALER [Concomitant]
     Indication: CHRONIC OBSTRUCTIVE PULMONARY DISEASE
     Dosage: 2 PUFFS BID
     Dates: start: 2007
  4. MS CONTIN [Concomitant]
     Indication: PAIN
  5. NORCO [Concomitant]
     Indication: PAIN
     Dosage: 2 PRN

REACTIONS (4)
  - Back disorder [Unknown]
  - Feeling abnormal [Unknown]
  - Weight increased [Unknown]
  - Pain [Unknown]
